FAERS Safety Report 16864963 (Version 1)
Quarter: 2019Q3

REPORT INFORMATION
  Report Type: Spontaneous
  Country: TR (occurrence: TR)
  Receive Date: 20190929
  Receipt Date: 20190929
  Transmission Date: 20191005
  Serious: Yes (Hospitalization)
  Sender: FDA-Public Use
  Company Number: PHHY2019TR225578

PATIENT
  Age: 9 Year
  Sex: Male
  Weight: 21 kg

DRUGS (2)
  1. ZOFRAN [Suspect]
     Active Substance: ONDANSETRON HYDROCHLORIDE
     Indication: VOMITING
  2. ZOFRAN [Suspect]
     Active Substance: ONDANSETRON HYDROCHLORIDE
     Indication: NAUSEA
     Dosage: 2.5 MG, UNK
     Route: 042
     Dates: start: 20190920

REACTIONS (7)
  - Medication error [Unknown]
  - Hypersensitivity [Not Recovered/Not Resolved]
  - Vomiting [Unknown]
  - Hallucination [Not Recovered/Not Resolved]
  - Eye contusion [Not Recovered/Not Resolved]
  - Overdose [Unknown]
  - Eye swelling [Not Recovered/Not Resolved]
